FAERS Safety Report 6975542 (Version 7)
Quarter: 2014Q2

REPORT INFORMATION
  Report Type: Spontaneous
  Country: JP (occurrence: None)
  Receive Date: 20090413
  Receipt Date: 20140605
  Transmission Date: 20141212
  Serious: Yes (Disabling, Other)
  Sender: FDA-Public Use
  Company Number: 2008JP001233

PATIENT
  Age: 39 Year
  Sex: Female
  Weight: 61 kg

DRUGS (14)
  1. PROGRAF (TACROLIMUS) CAPSULE [Suspect]
     Indication: LUPUS NEPHRITIS
     Route: 048
     Dates: start: 20070213, end: 20080218
  2. PREDNISOLONE [Suspect]
     Indication: LUPUS NEPHRITIS
     Route: 048
     Dates: start: 200209
  3. CANDESARTAN CILEXETIL [Concomitant]
  4. ADALAT [Concomitant]
  5. SELBEX (TEPRENONE) [Concomitant]
  6. DOXAZOSIN MESYLATE [Concomitant]
  7. BEZATOL (BEZAFIBRATE) [Concomitant]
  8. SULFAMETHOXAZOLE AND TRIMETHOPRIM [Concomitant]
  9. FERRUM /00023505/ (FERROUS FUMARATE) [Concomitant]
  10. PERSANTINE [Concomitant]
  11. EPADEL-S (EICOSAPENTAENOIC ACID ETHYL ESTER) [Concomitant]
  12. PANSOPORIN (CEFOTIAM HYDROCHLORIDE) [Concomitant]
  13. LEVOFLOXACIN [Concomitant]
  14. RELIFEN (NABUMETONE) [Concomitant]

REACTIONS (9)
  - Renal failure chronic [None]
  - Enteritis infectious [None]
  - Nephrogenic anaemia [None]
  - Osteonecrosis [None]
  - Pyelonephritis [None]
  - Nephrotic syndrome [None]
  - Panniculitis [None]
  - Autoimmune disorder [None]
  - Lupus nephritis [None]
